FAERS Safety Report 25777122 (Version 1)
Quarter: 2025Q3

REPORT INFORMATION
  Report Type: Spontaneous
  Country: US (occurrence: US)
  Receive Date: 20250909
  Receipt Date: 20250909
  Transmission Date: 20251020
  Serious: No
  Sender: DOMPE FARMACEUTICI
  Company Number: US-FARMAPROD-202410-3464

PATIENT
  Sex: Male

DRUGS (9)
  1. OXERVATE [Suspect]
     Active Substance: CENEGERMIN-BKBJ
     Indication: Neurotrophic keratopathy
     Route: 047
  2. OXERVATE [Suspect]
     Active Substance: CENEGERMIN-BKBJ
  3. OXERVATE [Suspect]
     Active Substance: CENEGERMIN-BKBJ
  4. SYNTHROID [Concomitant]
     Active Substance: LEVOTHYROXINE SODIUM
  5. PROTONIX [Concomitant]
     Active Substance: PANTOPRAZOLE SODIUM
  6. KEPPRA [Concomitant]
     Active Substance: LEVETIRACETAM
  7. VIMPAT [Concomitant]
     Active Substance: LACOSAMIDE
  8. LEXAPRO [Concomitant]
     Active Substance: ESCITALOPRAM OXALATE
  9. BACLOFEN [Concomitant]
     Active Substance: BACLOFEN

REACTIONS (4)
  - Ear discomfort [Not Recovered/Not Resolved]
  - Ocular hyperaemia [Unknown]
  - Ocular discomfort [Unknown]
  - Eye pain [Unknown]
